FAERS Safety Report 19607431 (Version 1)
Quarter: 2021Q3

REPORT INFORMATION
  Report Type: Spontaneous
  Country: CN (occurrence: CN)
  Receive Date: 20210726
  Receipt Date: 20210726
  Transmission Date: 20211014
  Serious: Yes (Other)
  Sender: FDA-Public Use
  Company Number: CN-009507513-2107CHN007047

PATIENT
  Age: 95 Year
  Sex: Male
  Weight: 55 kg

DRUGS (2)
  1. SODIUM CHLORIDE. [Concomitant]
     Active Substance: SODIUM CHLORIDE
     Indication: INFECTION
     Dosage: 100 ML, 3 TIMES A DAY
     Route: 041
     Dates: start: 20210620, end: 20210622
  2. TIENAM [Suspect]
     Active Substance: CILASTATIN SODIUM\IMIPENEM
     Indication: INFECTION
     Dosage: 0.5 GRM, 3 TIMES A DAY
     Route: 041
     Dates: start: 20210620, end: 20210622

REACTIONS (2)
  - Poor quality sleep [Not Recovered/Not Resolved]
  - Delirium [Recovered/Resolved]

NARRATIVE: CASE EVENT DATE: 20210622
